FAERS Safety Report 19882875 (Version 1)
Quarter: 2021Q3

REPORT INFORMATION
  Report Type: Spontaneous
  Country: CN (occurrence: CN)
  Receive Date: 20210924
  Receipt Date: 20210924
  Transmission Date: 20211014
  Serious: Yes (Other)
  Sender: FDA-Public Use
  Company Number: CN-BAXTER-2021BAX026094

PATIENT
  Age: 64 Year
  Sex: Female
  Weight: 55.4 kg

DRUGS (4)
  1. 0.9% SODIUM CHLORIDE INJECTION [Suspect]
     Active Substance: SODIUM CHLORIDE
     Indication: MEDICATION DILUTION
     Dosage: CYCLOPHOSPHAMIDE FOR 0.9G + 0.9% SODIUM CHLORIDE 40ML
     Route: 041
     Dates: start: 20190926, end: 20190926
  2. 5% GLUCOSE  INJECTION [Suspect]
     Active Substance: DEXTROSE
     Indication: MEDICATION DILUTION
     Dosage: EPIRUBICIN HYDROCHLORIDE 70 MG + 5% GLUCOSE 500ML
     Route: 041
     Dates: start: 20190926, end: 20190926
  3. AIDASHENG [Suspect]
     Active Substance: EPIRUBICIN HYDROCHLORIDE
     Indication: BREAST CANCER
     Dosage: 5% GLUCOSE INJECTION 500ML + EPIRUBICIN HYDROCHLORIDE FOR INJECTION 70 MG
     Route: 041
     Dates: start: 20190926, end: 20190926
  4. ENDOXAN [Suspect]
     Active Substance: CYCLOPHOSPHAMIDE
     Indication: BREAST CANCER
     Dosage: 0.9% SODIUM CHLORIDE INJECTION 40ML + CYCLOPHOSPHAMIDE FOR INJECTION 0.9G
     Route: 041
     Dates: start: 20190926, end: 20190926

REACTIONS (2)
  - Dizziness [Recovering/Resolving]
  - Myelosuppression [Recovering/Resolving]

NARRATIVE: CASE EVENT DATE: 20190929
